FAERS Safety Report 15538084 (Version 1)
Quarter: 2018Q4

REPORT INFORMATION
  Report Type: Spontaneous
  Country: RO (occurrence: RO)
  Receive Date: 20181022
  Receipt Date: 20181022
  Transmission Date: 20190205
  Serious: Yes (Other)
  Sender: FDA-Public Use
  Company Number: RO-PFIZER INC-2018425354

PATIENT

DRUGS (2)
  1. XELJANZ [Suspect]
     Active Substance: TOFACITINIB CITRATE
     Dosage: 5 MG, UNK
  2. METOTREXAT [Concomitant]
     Active Substance: METHOTREXATE SODIUM
     Dosage: 20 MG, UNK

REACTIONS (2)
  - Transaminases increased [Unknown]
  - Hepatocellular injury [Unknown]
